FAERS Safety Report 18503928 (Version 1)
Quarter: 2020Q4

REPORT INFORMATION
  Report Type: Spontaneous
  Country: FR (occurrence: FR)
  Receive Date: 20201113
  Receipt Date: 20201113
  Transmission Date: 20210114
  Serious: Yes (Other)
  Sender: FDA-Public Use
  Company Number: FR-ELI_LILLY_AND_COMPANY-FR202011001810

PATIENT
  Age: 36 Year
  Sex: Male

DRUGS (5)
  1. ZYPADHERA [Suspect]
     Active Substance: OLANZAPINE PAMOATE
     Indication: SCHIZOPHRENIA
     Dosage: 1 DOSAGE FORM, 2/M
     Route: 030
     Dates: start: 201812, end: 20200928
  2. ZYPADHERA [Suspect]
     Active Substance: OLANZAPINE PAMOATE
     Indication: SCHIZOPHRENIA
     Dosage: 1 DOSAGE FORM, 2/M
     Route: 030
     Dates: start: 201812, end: 20200928
  3. ZYPADHERA [Suspect]
     Active Substance: OLANZAPINE PAMOATE
     Indication: SCHIZOPHRENIA
     Dosage: 1 DOSAGE FORM, 2/M
     Route: 030
     Dates: start: 201812, end: 20200928
  4. ZOPICLONE [Concomitant]
     Active Substance: ZOPICLONE
     Indication: PRODUCT USED FOR UNKNOWN INDICATION
     Dosage: 7.5 MG, UNKNOWN
     Dates: start: 2018
  5. LEPTICUR [Concomitant]
     Active Substance: TROPATEPINE HYDROCHLORIDE
     Indication: PRODUCT USED FOR UNKNOWN INDICATION
     Dosage: 10 MG, UNKNOWN
     Dates: start: 2018

REACTIONS (10)
  - Disorientation [Recovered/Resolved]
  - Abnormal behaviour [Recovered/Resolved]
  - Post-injection delirium sedation syndrome [Recovered/Resolved]
  - Post-injection delirium sedation syndrome [Recovered/Resolved]
  - Dysarthria [Recovered/Resolved]
  - Agitation [Recovered/Resolved]
  - Asthenia [Recovered/Resolved]
  - Post-injection delirium sedation syndrome [Recovered/Resolved]
  - Speech disorder [Recovered/Resolved]
  - Disorientation [Recovered/Resolved]

NARRATIVE: CASE EVENT DATE: 20200831
